FAERS Safety Report 20872823 (Version 2)
Quarter: 2022Q3

REPORT INFORMATION
  Report Type: Spontaneous
  Country: DE (occurrence: DE)
  Receive Date: 20220525
  Receipt Date: 20220818
  Transmission Date: 20221027
  Serious: Yes (Congenital Anomaly)
  Sender: FDA-Public Use
  Company Number: DE-002147023-NVSC2022DE105887

PATIENT
  Age: 39 Week
  Sex: Female
  Weight: 3.175 kg

DRUGS (2)
  1. NEVIRAPINE [Suspect]
     Active Substance: NEVIRAPINE
     Indication: Product used for unknown indication
     Dosage: UNK UNK, QD  (MATERNAL DOSE: 445 MG/DAY, QD)
     Route: 064
  2. EMTRICITABINE\TENOFOVIR DISOPROXIL [Suspect]
     Active Substance: EMTRICITABINE\TENOFOVIR DISOPROXIL
     Indication: Product used for unknown indication
     Dosage: UNK, QD (MATERNAL DOSE: 400 MG/DAY, QD)
     Route: 064

REACTIONS (2)
  - Ventricular septal defect [Unknown]
  - Foetal exposure during pregnancy [Recovered/Resolved]
